FAERS Safety Report 16198510 (Version 1)
Quarter: 2019Q2

REPORT INFORMATION
  Report Type: Spontaneous
  Country: DE (occurrence: DE)
  Receive Date: 20190415
  Receipt Date: 20190415
  Transmission Date: 20190711
  Serious: Yes (Death)
  Sender: FDA-Public Use
  Company Number: DE-PURDUE-GBR-2019-0065557

PATIENT
  Age: 93 Year

DRUGS (1)
  1. NORSPAN [Suspect]
     Active Substance: BUPRENORPHINE
     Indication: PRODUCT USED FOR UNKNOWN INDICATION
     Dosage: UNK, Q1H, (5-10 MICROGRAM PER HOUR)
     Route: 062

REACTIONS (5)
  - Cerebral haemorrhage [Fatal]
  - Application site erythema [Unknown]
  - Fall [Fatal]
  - Dermatitis contact [Unknown]
  - Death [Fatal]

NARRATIVE: CASE EVENT DATE: 20190118
